FAERS Safety Report 6603780-X (Version None)
Quarter: 2010Q1

REPORT INFORMATION
  Report Type: 
  Country: None (occurrence: None)
  Receive Date: 20100226
  Receipt Date: 20090403
  Transmission Date: 20100710
  Serious: Yes (Other)
  Sender: FDA-Public Use
  Company Number: A0765331A

PATIENT
  Age: 10 Year
  Sex: Female

DRUGS (3)
  1. LAMICTAL CD [Suspect]
     Dosage: 50MG PER DAY
     Route: 048
     Dates: start: 20090101, end: 20090101
  2. ADDERALL 30 [Concomitant]
     Indication: ATTENTION DEFICIT/HYPERACTIVITY DISORDER
     Dosage: 10MG PER DAY
     Route: 048
     Dates: start: 20070522
  3. CARBATROL [Concomitant]
     Dosage: 500MG PER DAY
     Route: 048
     Dates: start: 20080502

REACTIONS (2)
  - DRUG ERUPTION [None]
  - RASH GENERALISED [None]
